FAERS Safety Report 23278747 (Version 2)
Quarter: 2024Q3

REPORT INFORMATION
  Report Type: Spontaneous
  Country: ES (occurrence: ES)
  Receive Date: 20231208
  Receipt Date: 20240925
  Transmission Date: 20241016
  Serious: Yes (Life-Threatening, Hospitalization, Disabling, Other)
  Sender: MYLAN
  Company Number: ES-BRISTOL-MYERS SQUIBB COMPANY-2023-132335

PATIENT
  Age: 50 Year
  Sex: Female

DRUGS (6)
  1. MIRTAZAPINE [Suspect]
     Active Substance: MIRTAZAPINE
     Indication: Affective disorder
     Dosage: 15 MILLIGRAM, QD
     Route: 048
     Dates: start: 20230605
  2. ACETAMINOPHEN [Suspect]
     Active Substance: ACETAMINOPHEN
     Indication: Pain
     Dosage: PATIENT WAS UNCERTAIN ABOUT EXACT NUMBER OF TABS TAKEN IN PREVIOUS WEEK OR SINCE STARTING OZANIMOD
     Route: 048
     Dates: start: 2022
  3. OZANIMOD [Suspect]
     Active Substance: OZANIMOD
     Indication: Multiple sclerosis
     Dosage: DOSING DETAILS UNKNOWN
     Route: 048
     Dates: start: 20230807
  4. OZANIMOD [Suspect]
     Active Substance: OZANIMOD
     Indication: Multiple sclerosis relapse
     Dosage: 0.92 MILLIGRAM, FREQ: UNAVAILABLE
     Route: 048
     Dates: end: 20230907
  5. LEVOTHYROXINE SODIUM [Concomitant]
     Active Substance: LEVOTHYROXINE SODIUM
     Indication: Hypothyroidism
     Dosage: 88 MICROGRAM, QD
     Route: 048
     Dates: start: 20160308
  6. BISOPROLOL [Concomitant]
     Active Substance: BISOPROLOL\BISOPROLOL FUMARATE
     Indication: Chest pain
     Dosage: 1.25 MILLIGRAM, QD
     Route: 048
     Dates: start: 20201031

REACTIONS (7)
  - Jaundice [Recovering/Resolving]
  - Encephalopathy [Unknown]
  - Malaise [Recovering/Resolving]
  - Hyperbilirubinaemia [Recovering/Resolving]
  - Acute hepatic failure [Recovering/Resolving]
  - Decreased appetite [Recovering/Resolving]
  - Asthenia [Recovering/Resolving]

NARRATIVE: CASE EVENT DATE: 20230822
